FAERS Safety Report 6298323-7 (Version None)
Quarter: 2009Q3

REPORT INFORMATION
  Report Type: 
  Country: None (occurrence: None)
  Receive Date: 20090805
  Receipt Date: 20090724
  Transmission Date: 20100115
  Serious: Yes (Other)
  Sender: FDA-Public Use
  Company Number: PHHY2009BR30985

PATIENT
  Age: 15 Year
  Sex: Female

DRUGS (4)
  1. RITALIN [Suspect]
     Indication: DISTURBANCE IN ATTENTION
     Dosage: 1 DF, BID
  2. RITALIN [Suspect]
     Dosage: 1/4 TABLET ONCE DAILY
  3. RITALIN [Suspect]
     Dosage: 0.5 DF, QD
  4. RITALIN [Suspect]
     Dosage: 1 DF, QD

REACTIONS (9)
  - ABDOMINAL PAIN UPPER [None]
  - DECREASED APPETITE [None]
  - FATIGUE [None]
  - HEADACHE [None]
  - NAUSEA [None]
  - SINUSITIS [None]
  - SOMNAMBULISM [None]
  - TREATMENT NONCOMPLIANCE [None]
  - WEIGHT DECREASED [None]
